FAERS Safety Report 8490041-X (Version None)
Quarter: 2012Q2

REPORT INFORMATION
  Report Type: 
  Country: None (occurrence: None)
  Receive Date: 20120626
  Receipt Date: 20120611
  Transmission Date: 20120825
  Serious: Yes (Disabling, Other)
  Sender: FDA-Public Use
  Company Number: 2011MA009260

PATIENT
  Sex: Female

DRUGS (12)
  1. LYRICA [Concomitant]
  2. OMEPRAZOLE [Concomitant]
  3. ZYPREXA [Concomitant]
  4. AMBIEN [Concomitant]
  5. CALTRARE PLUS D [Concomitant]
  6. EXCEDRIN (MIGRAINE) [Concomitant]
  7. LEXAPRO [Concomitant]
  8. CYCLIC ANTIDEPRESSANTS [Concomitant]
  9. METOCLOPRAMIDE [Suspect]
     Indication: PRODUCT USED FOR UNKNOWN INDICATION
     Dosage: 10 MG
     Dates: start: 20010101, end: 20080401
  10. BONIVA [Concomitant]
  11. SLEEP MEDICATIONS [Concomitant]
  12. LIDODERM [Concomitant]

REACTIONS (12)
  - INSOMNIA [None]
  - BACK PAIN [None]
  - TARDIVE DYSKINESIA [None]
  - FATIGUE [None]
  - COLD SWEAT [None]
  - CERVICOBRACHIAL SYNDROME [None]
  - EXTRAPYRAMIDAL DISORDER [None]
  - FAMILY STRESS [None]
  - HYPERREFLEXIA [None]
  - ECONOMIC PROBLEM [None]
  - MYALGIA [None]
  - EMOTIONAL DISTRESS [None]
